FAERS Safety Report 10782963 (Version 1)
Quarter: 2015Q1

REPORT INFORMATION
  Report Type: Spontaneous
  Country: US (occurrence: US)
  Receive Date: 20150210
  Receipt Date: 20150210
  Transmission Date: 20150721
  Serious: No
  Sender: FDA-Public Use
  Company Number: US-GLAXOSMITHKLINE-A1075279A

PATIENT

DRUGS (17)
  1. MULTIVITAMIN [Concomitant]
     Active Substance: VITAMINS
  2. DULERA [Concomitant]
     Active Substance: FORMOTEROL FUMARATE DIHYDRATE\MOMETASONE FUROATE
  3. WARFARIN [Concomitant]
     Active Substance: WARFARIN
  4. LYRICA [Concomitant]
     Active Substance: PREGABALIN
  5. NAPROSYN [Concomitant]
     Active Substance: NAPROXEN
  6. VESICARE [Concomitant]
     Active Substance: SOLIFENACIN SUCCINATE
  7. VICTOZA [Concomitant]
     Active Substance: LIRAGLUTIDE
  8. ZYVOX [Concomitant]
     Active Substance: LINEZOLID
  9. DIGOXIN. [Concomitant]
     Active Substance: DIGOXIN
  10. LASIX [Concomitant]
     Active Substance: FUROSEMIDE
  11. VERAPAMIL [Concomitant]
     Active Substance: VERAPAMIL HYDROCHLORIDE
  12. XOPENEX [Concomitant]
     Active Substance: LEVALBUTEROL HYDROCHLORIDE
  13. ZAROXOLYN [Concomitant]
     Active Substance: METOLAZONE
  14. ALLOPURINOL. [Concomitant]
     Active Substance: ALLOPURINOL
  15. DIOVAN [Concomitant]
     Active Substance: VALSARTAN
  16. VALTREX [Suspect]
     Active Substance: VALACYCLOVIR HYDROCHLORIDE
     Indication: HERPES ZOSTER
     Route: 048
     Dates: start: 20140528
  17. SINGULAIR [Concomitant]
     Active Substance: MONTELUKAST SODIUM

REACTIONS (2)
  - Pyrexia [Recovered/Resolved]
  - Urinary tract infection [Unknown]

NARRATIVE: CASE EVENT DATE: 201405
